FAERS Safety Report 9763405 (Version 1)
Quarter: 2013Q4

REPORT INFORMATION
  Report Type: Spontaneous
  Country: US (occurrence: US)
  Receive Date: 20131216
  Receipt Date: 20131216
  Transmission Date: 20140711
  Serious: No
  Sender: FDA-Public Use
  Company Number: US-BIOGENIDEC-2013BI108974

PATIENT
  Age: 53 Year
  Sex: Male

DRUGS (5)
  1. TECFIDERA [Suspect]
     Indication: PRODUCT USED FOR UNKNOWN INDICATION
     Route: 048
  2. TECFIDERA [Suspect]
     Indication: PRODUCT USED FOR UNKNOWN INDICATION
     Route: 048
  3. RISPERDAL [Concomitant]
  4. GABAPENTIN [Concomitant]
  5. TESTOSTERONE CYPIONATE [Concomitant]

REACTIONS (5)
  - Anger [Unknown]
  - Irritability [Unknown]
  - Feeling abnormal [Unknown]
  - Mood swings [Unknown]
  - Flushing [Unknown]
